FAERS Safety Report 6197970-0 (Version None)
Quarter: 2009Q2

REPORT INFORMATION
  Report Type: 
  Country: None (occurrence: None)
  Receive Date: 20090521
  Receipt Date: 20090514
  Transmission Date: 20091009
  Serious: Yes (Other)
  Sender: FDA-Public Use
  Company Number: B0575037A

PATIENT
  Age: 25 Year
  Sex: Male

DRUGS (1)
  1. ZENTEL [Suspect]
     Indication: INFECTION PARASITIC
     Dosage: 2TAB PER DAY
     Route: 048
     Dates: start: 20090428, end: 20090428

REACTIONS (8)
  - ASTHENIA [None]
  - CHROMATURIA [None]
  - HEADACHE [None]
  - LIVER INJURY [None]
  - NAUSEA [None]
  - SCLERAL DISCOLOURATION [None]
  - VOMITING [None]
  - YELLOW SKIN [None]
